APPROVED DRUG PRODUCT: BETAMETHASONE DIPROPIONATE
Active Ingredient: BETAMETHASONE DIPROPIONATE
Strength: EQ 0.05% BASE
Dosage Form/Route: OINTMENT;TOPICAL
Application: N019140 | Product #001
Applicant: PHARMADERM DIV ALTANA INC
Approved: Sep 4, 1984 | RLD: No | RS: No | Type: DISCN